FAERS Safety Report 5443209-0 (Version None)
Quarter: 2007Q3

REPORT INFORMATION
  Report Type: 
  Country: None (occurrence: None)
  Receive Date: 20070905
  Receipt Date: 20070828
  Transmission Date: 20080115
  Serious: Yes (Other)
  Sender: FDA-Public Use
  Company Number: NL-AVENTIS-200717848GDDC

PATIENT
  Age: 77 Year
  Sex: Female
  Weight: 82 kg

DRUGS (3)
  1. TAXOTERE [Suspect]
     Dosage: DOSE: 40 MG/ML FL0,5ML+SOLV (1,5 ML) TIMES PER 1 DF
     Route: 042
  2. FARMORUBICINE RTU [Suspect]
     Dosage: DOSE: 2 MG/ML FLACON (5 ML) TIMES PER 1 DF
     Route: 042
  3. NOLVADEX [Suspect]
     Dosage: DOSE: 10 MG TIMES PER 1 DF

REACTIONS (1)
  - NON-HODGKIN'S LYMPHOMA [None]
